FAERS Safety Report 13297525 (Version 1)
Quarter: 2017Q1

REPORT INFORMATION
  Report Type: Spontaneous
  Country: PH (occurrence: PH)
  Receive Date: 20170306
  Receipt Date: 20170306
  Transmission Date: 20170428
  Serious: Yes (Hospitalization)
  Sender: FDA-Public Use
  Company Number: PH-B.I. PHARMACEUTICALS,INC./RIDGEFIELD-2017-BI-011855

PATIENT
  Age: 51 Year
  Sex: Male

DRUGS (2)
  1. EXFORGE [Concomitant]
     Active Substance: AMLODIPINE BESYLATE\VALSARTAN
     Indication: HYPERTENSION
     Dosage: UNIT DOSE AND DAILY DOSE: 80/5 MILLIGRAM
     Route: 048
  2. JARDIANCE DUO [Suspect]
     Active Substance: EMPAGLIFLOZIN\METFORMIN HYDROCHLORIDE
     Indication: TYPE 2 DIABETES MELLITUS
     Dosage: DOSE: 12.5/1000 MILLIGRAM BID
     Route: 048
     Dates: start: 2016

REACTIONS (3)
  - Renal disorder [Recovered/Resolved]
  - Pyrexia [Recovered/Resolved]
  - Weight decreased [Recovered/Resolved]

NARRATIVE: CASE EVENT DATE: 20170217
